FAERS Safety Report 8540364-0 (Version None)
Quarter: 2012Q3

REPORT INFORMATION
  Report Type: 
  Country: None (occurrence: None)
  Receive Date: 20120726
  Receipt Date: 20120104
  Transmission Date: 20120928
  Serious: No
  Sender: FDA-Public Use
  Company Number: US-ASTRAZENECA-2010SE30402

PATIENT
  Age: 56 Year
  Sex: Female
  Weight: 49.9 kg

DRUGS (2)
  1. SEROQUEL [Suspect]
     Indication: BIPOLAR I DISORDER
     Route: 048
     Dates: start: 20040101, end: 20100601
  2. SEROQUEL [Suspect]
     Indication: INSOMNIA
     Route: 048
     Dates: start: 20040101, end: 20100601

REACTIONS (11)
  - DRUG DOSE OMISSION [None]
  - INSOMNIA [None]
  - DEPRESSION [None]
  - WRONG DRUG ADMINISTERED [None]
  - WRONG TECHNIQUE IN DRUG USAGE PROCESS [None]
  - GLUCOSE TOLERANCE IMPAIRED [None]
  - MALAISE [None]
  - HYPERTHYROIDISM [None]
  - WEIGHT DECREASED [None]
  - ALOPECIA [None]
  - NERVOUSNESS [None]
